FAERS Safety Report 4651838-7 (Version None)
Quarter: 2005Q2

REPORT INFORMATION
  Report Type: 
  Country: None (occurrence: None)
  Receive Date: 20050504
  Receipt Date: 20050422
  Transmission Date: 20051028
  Serious: Yes (Hospitalization)
  Sender: FDA-Public Use
  Company Number: US-GLAXOSMITHKLINE-A0555364A

PATIENT
  Age: 50 Year
  Sex: Female

DRUGS (3)
  1. PAXIL CR [Suspect]
     Indication: DEPRESSION
     Dosage: 25MG TWICE PER DAY
     Route: 048
     Dates: end: 20050222
  2. AMBIEN [Concomitant]
  3. PROTONIX [Concomitant]

REACTIONS (13)
  - ANXIETY [None]
  - BRUXISM [None]
  - BURNING SENSATION [None]
  - DEPRESSION [None]
  - LOSS OF LIBIDO [None]
  - MENTAL IMPAIRMENT [None]
  - NEGATIVE THOUGHTS [None]
  - NIGHTMARE [None]
  - PAIN [None]
  - PARANOIA [None]
  - PRURITUS [None]
  - SUICIDAL IDEATION [None]
  - SUICIDE ATTEMPT [None]
